FAERS Safety Report 4625440-7 (Version None)
Quarter: 2005Q2

REPORT INFORMATION
  Report Type: 
  Country: None (occurrence: None)
  Receive Date: 20050401
  Receipt Date: 20050316
  Transmission Date: 20051028
  Serious: Yes (Life-Threatening)
  Sender: FDA-Public Use
  Company Number: IT-BRISTOL-MYERS SQUIBB COMPANY-12904405

PATIENT
  Age: 73 Year
  Sex: Male

DRUGS (2)
  1. SINEMET [Suspect]
     Indication: EXTRAPYRAMIDAL DISORDER
     Dosage: DOSE VALUE:  250 + 25 MG
     Route: 048
     Dates: start: 20050121
  2. CABASER [Suspect]
     Route: 048
     Dates: start: 20050121, end: 20050127

REACTIONS (4)
  - AMAUROSIS [None]
  - SOPOR [None]
  - THROMBOCYTOPENIA [None]
  - TRANSAMINASES INCREASED [None]
